FAERS Safety Report 6839390-9 (Version None)
Quarter: 2010Q3

REPORT INFORMATION
  Report Type: 
  Country: None (occurrence: None)
  Receive Date: 20100714
  Receipt Date: 20100707
  Transmission Date: 20110219
  Serious: Yes (Other)
  Sender: FDA-Public Use
  Company Number: US-BAYER-201019033NA

PATIENT
  Age: 38 Year
  Sex: Male
  Weight: 102 kg

DRUGS (19)
  1. MAGNEVIST [Suspect]
     Indication: NUCLEAR MAGNETIC RESONANCE IMAGING BRAIN
     Route: 042
     Dates: start: 20060705, end: 20060705
  2. MAGNEVIST [Suspect]
     Route: 042
     Dates: start: 20080307, end: 20080307
  3. MAGNEVIST [Suspect]
     Dates: start: 20030919, end: 20030919
  4. UNKNOWN GADOLINIUM [Suspect]
     Indication: FISTULOGRAM
     Dates: start: 20070815, end: 20070815
  5. OMNISCAN [Suspect]
     Indication: NUCLEAR MAGNETIC RESONANCE IMAGING
  6. MULTIHANCE [Suspect]
     Indication: NUCLEAR MAGNETIC RESONANCE IMAGING
  7. PROHANCE [Suspect]
     Indication: NUCLEAR MAGNETIC RESONANCE IMAGING
  8. OPTIMARK [Suspect]
     Indication: NUCLEAR MAGNETIC RESONANCE IMAGING
  9. COUMADIN [Concomitant]
  10. LISINOPRIL [Concomitant]
  11. DIATX [Concomitant]
  12. PHOSLO [Concomitant]
  13. FERRLECIT [Concomitant]
  14. EPOGEN [Concomitant]
  15. ZEMPLAR [Concomitant]
  16. RENAX [Concomitant]
  17. RENAGEL [Concomitant]
  18. SENSIPAR [Concomitant]
  19. SULAR [Concomitant]

REACTIONS (27)
  - ANHEDONIA [None]
  - ARTHRALGIA [None]
  - ASTHENIA [None]
  - BACK PAIN [None]
  - BALANCE DISORDER [None]
  - DRY SKIN [None]
  - DYSSTASIA [None]
  - EXTREMITY CONTRACTURE [None]
  - GAIT DISTURBANCE [None]
  - HYPOAESTHESIA [None]
  - JOINT CONTRACTURE [None]
  - LETHARGY [None]
  - MOBILITY DECREASED [None]
  - MUSCLE SPASTICITY [None]
  - MUSCULAR WEAKNESS [None]
  - MUSCULOSKELETAL PAIN [None]
  - MUSCULOSKELETAL STIFFNESS [None]
  - MYALGIA [None]
  - NEPHROGENIC SYSTEMIC FIBROSIS [None]
  - OEDEMA PERIPHERAL [None]
  - PAIN IN EXTREMITY [None]
  - PARAESTHESIA [None]
  - PRURITUS [None]
  - SKIN HYPERTROPHY [None]
  - SKIN REACTION [None]
  - SKIN TIGHTNESS [None]
  - TREMOR [None]
